APPROVED DRUG PRODUCT: OLMESARTAN MEDOXOMIL AND HYDROCHLOROTHIAZIDE
Active Ingredient: HYDROCHLOROTHIAZIDE; OLMESARTAN MEDOXOMIL
Strength: 25MG;40MG
Dosage Form/Route: TABLET;ORAL
Application: A200532 | Product #003
Applicant: TEVA PHARMACEUTICALS USA INC
Approved: Apr 24, 2017 | RLD: No | RS: No | Type: DISCN